FAERS Safety Report 23810200 (Version 1)
Quarter: 2024Q2

REPORT INFORMATION
  Report Type: Spontaneous
  Country: US (occurrence: None)
  Receive Date: 20240501
  Receipt Date: 20240501
  Transmission Date: 20240716
  Serious: No
  Sender: FDA-Public Use
  Company Number: None

PATIENT
  Age: 54 Year
  Sex: Female
  Weight: 66.6 kg

DRUGS (1)
  1. CIPROFLOXACIN [Suspect]
     Active Substance: CIPROFLOXACIN
     Indication: Large intestine infection
     Dosage: FREQUENCY : TWICE A DAY;?
     Route: 048
     Dates: start: 20240320, end: 20240323

REACTIONS (9)
  - Tendon pain [None]
  - Muscle atrophy [None]
  - Palpitations [None]
  - Anxiety [None]
  - Fatigue [None]
  - Chest pain [None]
  - Palpitations [None]
  - Gait disturbance [None]
  - Muscle atrophy [None]

NARRATIVE: CASE EVENT DATE: 20240323
